FAERS Safety Report 16370312 (Version 1)
Quarter: 2019Q2

REPORT INFORMATION
  Report Type: Spontaneous
  Country: US (occurrence: US)
  Receive Date: 20190530
  Receipt Date: 20190530
  Transmission Date: 20190711
  Serious: No
  Sender: FDA-Public Use
  Company Number: US-ASTRAZENECA-2019SE78376

PATIENT
  Sex: Female

DRUGS (10)
  1. PROTONIX [Concomitant]
     Active Substance: PANTOPRAZOLE SODIUM
  2. AMLODIPINE [Concomitant]
     Active Substance: AMLODIPINE BESYLATE
  3. PLAVIX [Concomitant]
     Active Substance: CLOPIDOGREL BISULFATE
     Dates: start: 20190513
  4. LOSARTAN. [Concomitant]
     Active Substance: LOSARTAN
  5. VITAMIN B12 [Concomitant]
     Active Substance: CYANOCOBALAMIN
     Dosage: 30 ML
  6. CRESTOR [Suspect]
     Active Substance: ROSUVASTATIN CALCIUM
     Route: 048
     Dates: start: 20140204
  7. ASPIRIN. [Concomitant]
     Active Substance: ASPIRIN
  8. METOPROLOL SUCCINATE. [Suspect]
     Active Substance: METOPROLOL SUCCINATE
     Route: 048
     Dates: start: 20190508
  9. BRILINTA [Suspect]
     Active Substance: TICAGRELOR
     Indication: CARDIAC DISORDER
     Route: 048
     Dates: start: 20190508
  10. MULTI VITAMIN WITH IRON [Concomitant]
     Dosage: DAILY

REACTIONS (2)
  - Gastrointestinal haemorrhage [Unknown]
  - Dizziness [Recovered/Resolved]
